FAERS Safety Report 10015938 (Version 1)
Quarter: 2014Q1

REPORT INFORMATION
  Report Type: Spontaneous
  Country: FR (occurrence: FR)
  Receive Date: 20140317
  Receipt Date: 20140317
  Transmission Date: 20141002
  Serious: Yes (Hospitalization)
  Sender: FDA-Public Use
  Company Number: FR-PFIZER INC-2014075539

PATIENT
  Age: 66 Year
  Sex: Male

DRUGS (13)
  1. CORDARONE [Suspect]
     Indication: ATRIAL FIBRILLATION
     Dosage: 200 MG, DAILY
     Route: 048
     Dates: start: 20131021
  2. PRADAXA [Interacting]
     Dosage: 300 MG, DAILY
     Route: 048
     Dates: end: 20131104
  3. DIFFU K [Concomitant]
     Dosage: UNK
  4. FUROSEMIDE [Concomitant]
     Dosage: UNK
  5. RAMIPRIL [Concomitant]
     Dosage: UNK
  6. SERESTA [Concomitant]
     Dosage: UNK
  7. SERETIDE [Concomitant]
     Dosage: UNK
  8. DIGOXINE NATIVELLE [Concomitant]
     Dosage: UNK
  9. ESOMEPRAZOLE [Concomitant]
     Dosage: UNK
  10. MIANSERINE [Concomitant]
     Dosage: UNK
  11. TRANSIPEG [Concomitant]
     Dosage: UNK
  12. MEBEVERINE [Concomitant]
     Dosage: UNK
  13. DOMPERIDONE [Concomitant]
     Dosage: UNK

REACTIONS (2)
  - Drug interaction [Unknown]
  - Intra-abdominal haematoma [Recovered/Resolved]
